FAERS Safety Report 5443292-2 (Version None)
Quarter: 2007Q3

REPORT INFORMATION
  Report Type: 
  Country: None (occurrence: None)
  Receive Date: 20070905
  Receipt Date: 20070824
  Transmission Date: 20080115
  Serious: Yes (Hospitalization)
  Sender: FDA-Public Use
  Company Number: BR-ELI_LILLY_AND_COMPANY-BR200709000096

PATIENT
  Age: 80 Year
  Sex: Female

DRUGS (7)
  1. FORTEO [Suspect]
     Indication: OSTEOPOROSIS
     Dosage: 20 UG, DAILY (1/D)
     Route: 058
     Dates: end: 20070101
  2. FORTEO [Suspect]
     Dosage: 20 UG, DAILY (1/D)
     Route: 058
     Dates: start: 20070101
  3. EUPRESSIN [Concomitant]
     Dosage: 2.5 MG, DAILY (1/D)
     Route: 048
  4. ZOLOFT [Concomitant]
     Dosage: 50 MG, DAILY (1/D)
     Route: 048
  5. OSCAL /00108001/ [Concomitant]
     Dosage: UNK, 2/D
     Route: 048
  6. SOMALGIN [Concomitant]
     Indication: CARDIAC DISORDER
     Dosage: 100 MG, DAILY (1/D)
     Route: 048
  7. SIMVASTATIN [Concomitant]
     Indication: BLOOD CHOLESTEROL ABNORMAL
     Dosage: 20 MG, DAILY (1/D)
     Route: 048

REACTIONS (1)
  - MYASTHENIA GRAVIS [None]
